FAERS Safety Report 7142116-5 (Version None)
Quarter: 2010Q4

REPORT INFORMATION
  Report Type: 
  Country: None (occurrence: None)
  Receive Date: 20101207
  Receipt Date: 20101202
  Transmission Date: 20110411
  Serious: Yes (Other)
  Sender: FDA-Public Use
  Company Number: US-B.I. PHARMACEUTICALS,INC./RIDGEFIELD-2010-BP-13639BP

PATIENT
  Age: 85 Year
  Sex: Female

DRUGS (2)
  1. AGGRENOX [Suspect]
     Indication: CEREBROVASCULAR ACCIDENT PROPHYLAXIS
     Dosage: 25MG/200MG
     Route: 048
     Dates: start: 20091229, end: 20091229
  2. AGGRENOX [Suspect]
     Indication: ATRIAL FIBRILLATION

REACTIONS (2)
  - DYSPEPSIA [None]
  - LOSS OF CONSCIOUSNESS [None]
